FAERS Safety Report 11062243 (Version 2)
Quarter: 2015Q2

REPORT INFORMATION
  Report Type: Spontaneous
  Country: JP (occurrence: None)
  Receive Date: 20150422
  Receipt Date: 20150629
  Transmission Date: 20150821
  Serious: No
  Sender: FDA-Public Use
  Company Number: PR 7546

PATIENT
  Age: 65 Year
  Sex: Male

DRUGS (2)
  1. ARENIST (TRANILAST) EYE DROPS [Concomitant]
  2. ZIOPTAN [Suspect]
     Active Substance: TAFLUPROST
     Indication: OPEN ANGLE GLAUCOMA
     Dosage: 1 GTT INTO BOTH EYES/DAY
     Route: 047
     Dates: start: 20121121

REACTIONS (4)
  - Epistaxis [None]
  - Eyelid tumour [None]
  - Hypertension [None]
  - Arrhythmia [None]

NARRATIVE: CASE EVENT DATE: 201305
